FAERS Safety Report 9000729 (Version 1)
Quarter: 2013Q1

REPORT INFORMATION
  Report Type: Report from Study
  Country: US (occurrence: US)
  Receive Date: 20130107
  Receipt Date: 20130107
  Transmission Date: 20140127
  Serious: No
  Sender: FDA-Public Use
  Company Number: US-VERTEX PHARMACEUTICALS INC.-2013-000194

PATIENT
  Sex: Female

DRUGS (10)
  1. VX-950 (TELAPREVIR) [Suspect]
     Indication: HEPATITIS C
     Dosage: 750 MG, TID
     Route: 048
  2. RIBAVIRIN [Suspect]
     Dosage: 200 MG, UNK
  3. PEGASYS [Suspect]
     Indication: HEPATITIS C
     Dosage: 180MCG/M
  4. LISINOPRIL [Concomitant]
     Dosage: 20 MG, UNK
  5. MATZIM LA [Concomitant]
     Dosage: 360MG/24
  6. PREDNISONE [Concomitant]
     Dosage: 5 MG, UNK
  7. SULFASALAZIN [Concomitant]
     Dosage: 500 MG, UNK
  8. HYDROXYCHLOR [Concomitant]
     Dosage: 200 MG, UNK
  9. ALENDRONATE [Concomitant]
     Dosage: 70 MG, UNK
  10. MULTIVITAMIN                       /00097801/ [Concomitant]

REACTIONS (3)
  - Pyrexia [Unknown]
  - Pain [Recovered/Resolved]
  - Eye swelling [Unknown]
